FAERS Safety Report 5039050-3 (Version None)
Quarter: 2006Q2

REPORT INFORMATION
  Report Type: 
  Country: None (occurrence: None)
  Receive Date: 20060627
  Receipt Date: 20060627
  Transmission Date: 20061013
  Serious: Yes (Disabling)
  Sender: FDA-Public Use
  Company Number: None

PATIENT
  Age: 54 Year
  Sex: Male
  Weight: 68.0396 kg

DRUGS (1)
  1. CUBICIN [Suspect]
     Indication: POSTOPERATIVE ABSCESS
     Dosage: 350 MG Q 24 HOURS IV
     Route: 042
     Dates: start: 20051217, end: 20051228

REACTIONS (2)
  - ANGINA PECTORIS [None]
  - INFUSION RELATED REACTION [None]
